FAERS Safety Report 9161242 (Version 1)
Quarter: 2013Q1

REPORT INFORMATION
  Report Type: Spontaneous
  Country: US (occurrence: US)
  Receive Date: 20130313
  Receipt Date: 20130313
  Transmission Date: 20140127
  Serious: No
  Sender: FDA-Public Use
  Company Number: US-009507513-1303USA003348

PATIENT
  Sex: Male

DRUGS (3)
  1. VICTRELIS [Suspect]
     Indication: HEPATITIS C
     Dosage: 200 MG, THRICE DAILY
     Route: 048
     Dates: start: 20111001
  2. RIBAVIRIN [Suspect]
     Route: 048
  3. PEGINTERFERON ALFA-2A [Suspect]

REACTIONS (1)
  - Rash [Unknown]
